FAERS Safety Report 6371585-3 (Version None)
Quarter: 2009Q3

REPORT INFORMATION
  Report Type: 
  Country: None (occurrence: None)
  Receive Date: 20090923
  Receipt Date: 20080327
  Transmission Date: 20100115
  Serious: No
  Sender: FDA-Public Use
  Company Number: US-ASTRAZENECA-2007UW24323

PATIENT
  Age: 16655 Day
  Sex: Male
  Weight: 117.8 kg

DRUGS (14)
  1. SEROQUEL [Suspect]
     Indication: BIPOLAR DISORDER
     Dosage: 100MG AM AND 300MG PM
     Route: 048
     Dates: start: 20010101, end: 20070601
  2. SEROQUEL [Suspect]
     Dosage: 25-300 MG DISPENSED, 300 MG AT BED TIME
     Route: 048
  3. SIMVASTATIN [Concomitant]
     Route: 065
  4. METFORMIN HCL [Concomitant]
     Route: 065
  5. LOPRESSOR [Concomitant]
     Route: 065
  6. LOVENOX [Concomitant]
     Dosage: 100 MG/ML, 120 MG/ 0.8
     Route: 065
  7. TOPAMAX [Concomitant]
     Route: 065
  8. ABILIFY [Concomitant]
     Dosage: 5 MG OTS
     Route: 065
  9. TOPROL-XL [Concomitant]
     Dosage: 25 MG SA AST
     Route: 065
  10. COREG [Concomitant]
     Route: 065
  11. CEPHALEXIN [Concomitant]
     Route: 065
  12. FLUTICASONE [Concomitant]
     Route: 045
  13. METHYLPREDNISOLONE 4MG TAB [Concomitant]
     Route: 065
  14. AUGMENTIN [Concomitant]
     Dosage: 1000-62.5
     Route: 065

REACTIONS (3)
  - DIABETES MELLITUS [None]
  - DYSLIPIDAEMIA [None]
  - METABOLIC SYNDROME [None]
